FAERS Safety Report 9106888 (Version 2)
Quarter: 2013Q1

REPORT INFORMATION
  Report Type: Spontaneous
  Country: US (occurrence: US)
  Receive Date: 20130221
  Receipt Date: 20130225
  Transmission Date: 20140127
  Serious: Yes (Hospitalization)
  Sender: FDA-Public Use
  Company Number: US-BAXTER-2013BAX005786

PATIENT
  Age: 79 Year
  Sex: Female

DRUGS (6)
  1. DIANEAL LOW CALCIUM [Suspect]
     Indication: PERITONEAL DIALYSIS
     Route: 033
     Dates: end: 20130210
  2. DIANEAL LOW CALCIUM [Suspect]
     Route: 033
     Dates: start: 20130212
  3. DIANEAL LOW CALCIUM [Suspect]
     Indication: PERITONEAL DIALYSIS
     Route: 033
     Dates: end: 20130210
  4. DIANEAL LOW CALCIUM [Suspect]
     Route: 033
     Dates: start: 20130212
  5. EXTRANEAL [Suspect]
     Indication: PERITONEAL DIALYSIS
     Route: 033
     Dates: end: 20130210
  6. EXTRANEAL [Suspect]
     Route: 033
     Dates: start: 20130212

REACTIONS (2)
  - Troponin increased [Recovering/Resolving]
  - Chest pain [Recovered/Resolved]
